FAERS Safety Report 4636117-6 (Version None)
Quarter: 2005Q2

REPORT INFORMATION
  Report Type: 
  Country: None (occurrence: None)
  Receive Date: 20050414
  Receipt Date: 20050414
  Transmission Date: 20051028
  Serious: Yes (Death)
  Sender: FDA-Public Use
  Company Number: None

PATIENT
  Sex: Male
  Weight: 88 kg

DRUGS (10)
  1. TOPOTOCAN [Suspect]
     Dates: start: 20050214
  2. ETOPOSIDE [Suspect]
  3. CISPLATIN [Concomitant]
  4. IRINOTECAN HCL [Suspect]
  5. COMPAZINE [Concomitant]
  6. CRESTOR [Concomitant]
  7. DECADRON [Concomitant]
  8. EFFEXOR [Concomitant]
  9. PRILOSEC [Concomitant]
  10. ZOFRAN [Concomitant]

REACTIONS (5)
  - BACTERIAL INFECTION [None]
  - ENTERITIS [None]
  - FEBRILE NEUTROPENIA [None]
  - PNEUMONIA [None]
  - RESPIRATORY FAILURE [None]
